FAERS Safety Report 4521702-2 (Version None)
Quarter: 2004Q4

REPORT INFORMATION
  Report Type: 
  Country: None (occurrence: None)
  Receive Date: 20041206
  Receipt Date: 20041124
  Transmission Date: 20050328
  Serious: No
  Sender: FDA-Public Use
  Company Number: 2004UW21554

PATIENT
  Age: 63 Year
  Sex: Female
  Weight: 58.9676 kg

DRUGS (4)
  1. XYLOCAINE [Suspect]
     Indication: DENTAL OPERATION
     Dates: start: 20041006
  2. PAXIL [Concomitant]
  3. ATIVAN [Concomitant]
  4. NO MATCH [Concomitant]

REACTIONS (6)
  - CHEST PAIN [None]
  - DIZZINESS [None]
  - HEADACHE [None]
  - NAUSEA [None]
  - POST PROCEDURAL COMPLICATION [None]
  - VISION BLURRED [None]
